FAERS Safety Report 7885498-9 (Version None)
Quarter: 2011Q4

REPORT INFORMATION
  Report Type: 
  Country: None (occurrence: None)
  Receive Date: 20111102
  Receipt Date: 20111021
  Transmission Date: 20120403
  Serious: Yes (Hospitalization)
  Sender: FDA-Public Use
  Company Number: US-BAYER-2011-050573

PATIENT
  Age: 29 Year
  Sex: Female
  Weight: 71.655 kg

DRUGS (14)
  1. YASMIN [Suspect]
     Indication: PREMENSTRUAL SYNDROME
  2. DROSPIRENONE AND ETHINYL ESTRADIOL [Suspect]
     Indication: MENSTRUAL CYCLE MANAGEMENT
  3. GABAPENTIN [Concomitant]
  4. YASMIN [Suspect]
     Indication: CONTRACEPTION
     Dosage: UNK
     Dates: start: 20080101, end: 20090101
  5. DROSPIRENONE AND ETHINYL ESTRADIOL [Suspect]
     Indication: PREMENSTRUAL SYNDROME
  6. ACETAMINOPHEN AND HYDROCODONE BITARTRATE [Concomitant]
  7. TRAZODONE HYDROCHLORIDE [Concomitant]
  8. METHOCARBAMOL [Concomitant]
  9. AZITHROMYCIN [Concomitant]
  10. YASMIN [Suspect]
     Indication: MENSTRUAL CYCLE MANAGEMENT
  11. DROSPIRENONE AND ETHINYL ESTRADIOL [Suspect]
     Indication: CONTRACEPTION
     Dosage: UNK
     Dates: start: 20080101, end: 20090101
  12. CELEXA [Concomitant]
  13. ZANTAC [Concomitant]
  14. TYLENOL W/ CODEINE NO. 3 [Concomitant]

REACTIONS (7)
  - DYSPNOEA [None]
  - PULMONARY EMBOLISM [None]
  - PAIN [None]
  - HAEMOPTYSIS [None]
  - INJURY [None]
  - MOBILITY DECREASED [None]
  - PAIN IN EXTREMITY [None]
